FAERS Safety Report 4771594-1 (Version None)
Quarter: 2005Q3

REPORT INFORMATION
  Report Type: 
  Country: None (occurrence: None)
  Receive Date: 20050916
  Receipt Date: 20050616
  Transmission Date: 20060218
  Serious: Yes (Hospitalization)
  Sender: FDA-Public Use
  Company Number: IE-BRISTOL-MYERS SQUIBB COMPANY-13008214

PATIENT
  Age: 55 Year
  Sex: Female
  Weight: 70 kg

DRUGS (10)
  1. LIPOSTAT 10% [Suspect]
     Indication: BLOOD CHOLESTEROL INCREASED
     Route: 048
     Dates: start: 20021101, end: 20050801
  2. INDERAL [Suspect]
     Route: 048
     Dates: start: 19940101
  3. MIDON [Concomitant]
     Route: 048
     Dates: start: 20010101
  4. VENLAFAXINE HCL [Concomitant]
     Route: 048
     Dates: start: 20030101
  5. CALCICHEW D3 [Concomitant]
     Route: 048
     Dates: start: 20010101
  6. ASCORBIC ACID [Concomitant]
  7. LOSEC [Concomitant]
     Route: 048
     Dates: start: 20010101
  8. TRAMADOL [Concomitant]
  9. PROFLEX [Concomitant]
     Route: 061
     Dates: start: 20030101
  10. NASONEX [Concomitant]
     Route: 045
     Dates: start: 20030101

REACTIONS (13)
  - AMNESIA [None]
  - ARTHRALGIA [None]
  - ASTHENIA [None]
  - BLINDNESS TRANSIENT [None]
  - CHOKING [None]
  - CONFUSIONAL STATE [None]
  - HEADACHE [None]
  - MUSCLE SPASMS [None]
  - MYALGIA [None]
  - PAIN [None]
  - THROAT TIGHTNESS [None]
  - VISION BLURRED [None]
  - WHEEZING [None]
